FAERS Safety Report 5773994-X (Version None)
Quarter: 2008Q2

REPORT INFORMATION
  Report Type: 
  Country: None (occurrence: None)
  Receive Date: 20080616
  Receipt Date: 20080602
  Transmission Date: 20081010
  Serious: Yes (Death, Life-Threatening, Disabling, Other)
  Sender: FDA-Public Use
  Company Number: RS-ROCHE-558289

PATIENT
  Sex: Male

DRUGS (3)
  1. XELODA [Suspect]
     Indication: COLORECTAL CANCER
     Dosage: ONE CYCLE.
     Route: 048
     Dates: start: 20070301
  2. FLUOROURACIL [Concomitant]
     Indication: COLORECTAL CANCER
     Dosage: NEOADJUVANT. 3 CYCLES PARALLEL WITH RO THERAPY.
  3. HELLEBORUS [Concomitant]
     Dosage: REPORTED AS TEA CONTAINING HELLEBORUS ODORUS.

REACTIONS (7)
  - DIARRHOEA [None]
  - DISEASE PROGRESSION [None]
  - ILEUS PARALYTIC [None]
  - NECROSIS [None]
  - NEUTROPENIA [None]
  - STOMATITIS [None]
  - SUPERINFECTION [None]
